FAERS Safety Report 23401107 (Version 3)
Quarter: 2024Q2

REPORT INFORMATION
  Report Type: Spontaneous
  Country: US (occurrence: US)
  Receive Date: 20240115
  Receipt Date: 20240527
  Transmission Date: 20240716
  Serious: Yes (Death, Hospitalization, Other)
  Sender: FDA-Public Use
  Company Number: US-GSK-US2024003337

PATIENT

DRUGS (10)
  1. BENLYSTA [Suspect]
     Active Substance: BELIMUMAB
     Indication: Systemic lupus erythematosus
     Dosage: 900 MG, MO
     Dates: start: 20180419, end: 20240117
  2. PROLIA [Concomitant]
     Active Substance: DENOSUMAB
     Indication: Osteopetrosis
     Dosage: 1 ML EVERY 2 YEARS
     Dates: start: 2017, end: 20210106
  3. INSULIN NOS [Concomitant]
     Active Substance: INSULIN NOS
     Indication: Diabetes mellitus
     Dosage: UNK
     Dates: start: 2008, end: 2013
  4. LASIX [Concomitant]
     Active Substance: FUROSEMIDE
     Indication: Product used for unknown indication
     Dosage: 1 DF, QD 20MG
     Dates: start: 20160302
  5. SYNTHROID [Concomitant]
     Active Substance: LEVOTHYROXINE SODIUM
     Indication: Hypothyroidism
     Dosage: UNK 0.1MG - 0.175MG
     Dates: start: 20080710, end: 20190626
  6. HUMALOG [Concomitant]
     Active Substance: INSULIN LISPRO
     Indication: Diabetes mellitus
     Dosage: UNK
     Dates: start: 2013, end: 2018
  7. BASAGLAR [Concomitant]
     Active Substance: INSULIN GLARGINE
     Indication: Diabetes mellitus
     Dosage: 3 ML
     Dates: start: 20170307
  8. MELATONIN [Concomitant]
     Active Substance: MELATONIN
     Indication: Insomnia
     Dosage: UNK
     Dates: start: 20240116
  9. ATORVASTATIN [Concomitant]
     Active Substance: ATORVASTATIN
     Indication: Cardiovascular disorder
     Dosage: 40 MG, QD
     Dates: start: 20180206, end: 20221202
  10. ALBUTEROL [Concomitant]
     Active Substance: ALBUTEROL
     Indication: Dyspnoea
     Dosage: 3 ML, TID 3ML 2.5MG / 3 TIMES A DAY
     Dates: start: 20240116

REACTIONS (3)
  - Death [Fatal]
  - Peripheral swelling [Unknown]
  - Skin discolouration [Unknown]
